FAERS Safety Report 9252021 (Version 3)
Quarter: 2013Q2

REPORT INFORMATION
  Report Type: Spontaneous
  Country: JP (occurrence: JP)
  Receive Date: 20130424
  Receipt Date: 20130502
  Transmission Date: 20140414
  Serious: Yes (Death)
  Sender: FDA-Public Use
  Company Number: JP-PFIZER INC-2013125064

PATIENT
  Age: 71 Year
  Sex: Male

DRUGS (4)
  1. OXALIPLATIN [Suspect]
     Indication: METASTASES TO LIVER
     Dosage: UNK
     Dates: start: 2010
  2. FLUOROURACIL [Suspect]
     Indication: METASTASES TO LIVER
     Dosage: UNK
     Dates: start: 2010
  3. CALCIUM FOLINATE [Suspect]
     Indication: METASTASES TO LIVER
     Dosage: UNK
     Dates: start: 2010
  4. CETUXIMAB [Suspect]
     Indication: METASTASES TO LIVER
     Dosage: UNK
     Dates: start: 2011

REACTIONS (1)
  - Interstitial lung disease [Fatal]
